FAERS Safety Report 16176526 (Version 1)
Quarter: 2019Q2

REPORT INFORMATION
  Report Type: Spontaneous
  Country: US (occurrence: US)
  Receive Date: 20190409
  Receipt Date: 20190409
  Transmission Date: 20190711
  Serious: No
  Sender: FDA-Public Use
  Company Number: US-GLAXOSMITHKLINE-US2019GSK063542

PATIENT
  Sex: Female

DRUGS (2)
  1. TRELEGY ELLIPTA [Suspect]
     Active Substance: FLUTICASONE FUROATE\UMECLIDINIUM BROMIDE\VILANTEROL TRIFENATATE
     Indication: PRODUCT USED FOR UNKNOWN INDICATION
     Dosage: UNK
     Route: 055
     Dates: start: 201804
  2. CITALOPRAM [Suspect]
     Active Substance: CITALOPRAM HYDROBROMIDE

REACTIONS (5)
  - Contusion [Unknown]
  - Head discomfort [Unknown]
  - Ocular discomfort [Unknown]
  - Fall [Unknown]
  - Headache [Unknown]
